FAERS Safety Report 8026928-1 (Version None)
Quarter: 2012Q1

REPORT INFORMATION
  Report Type: 
  Country: None (occurrence: None)
  Receive Date: 20120106
  Receipt Date: 20111230
  Transmission Date: 20120608
  Serious: Yes (Hospitalization)
  Sender: FDA-Public Use
  Company Number: CA-JNJFOC-20120100462

PATIENT
  Sex: Female
  Weight: 75 kg

DRUGS (3)
  1. METHOTREXATE [Concomitant]
     Route: 048
  2. PREDNISONE TAB [Concomitant]
     Dosage: PRN
     Route: 065
  3. REMICADE [Suspect]
     Indication: ANKYLOSING SPONDYLITIS
     Route: 042
     Dates: start: 20080514

REACTIONS (1)
  - OVARIAN CYST [None]
